FAERS Safety Report 8216475-6 (Version None)
Quarter: 2012Q1

REPORT INFORMATION
  Report Type: 
  Country: None (occurrence: None)
  Receive Date: 20120316
  Receipt Date: 20120306
  Transmission Date: 20120608
  Serious: Yes (Hospitalization)
  Sender: FDA-Public Use
  Company Number: US-DX529-2012DX000063

PATIENT
  Age: 42 Year
  Sex: Female
  Weight: 127.01 kg

DRUGS (4)
  1. DANAZOL [Concomitant]
     Indication: HEREDITARY ANGIOEDEMA
  2. KALBITOR [Suspect]
     Indication: HEREDITARY ANGIOEDEMA
     Route: 058
     Dates: start: 20120224, end: 20120224
  3. KALBITOR [Suspect]
     Route: 058
     Dates: start: 20120302, end: 20120302
  4. DEPO-PROVERA [Concomitant]
     Indication: CONTRACEPTION
     Dates: start: 20120106

REACTIONS (3)
  - HEREDITARY ANGIOEDEMA [None]
  - BLOOD GLUCOSE INCREASED [None]
  - BLOOD PRESSURE INCREASED [None]
